FAERS Safety Report 5084131-1 (Version None)
Quarter: 2006Q3

REPORT INFORMATION
  Report Type: 
  Country: None (occurrence: None)
  Receive Date: 20060816
  Receipt Date: 20060809
  Transmission Date: 20061208
  Serious: Yes (Other)
  Sender: FDA-Public Use
  Company Number: 2006US-03208

PATIENT
  Age: 31 Year
  Sex: Female

DRUGS (2)
  1. ISOTRETINOIN [Suspect]
     Dosage: 40 MG, QD, UNK
     Dates: start: 20060713, end: 20060726
  2. TOPAMAX [Concomitant]

REACTIONS (7)
  - ASTHENIA [None]
  - DIZZINESS [None]
  - DYSPNOEA [None]
  - HYPERHIDROSIS [None]
  - NAUSEA [None]
  - PALPITATIONS [None]
  - TREMOR [None]
